FAERS Safety Report 21144254 (Version 1)
Quarter: 2022Q3

REPORT INFORMATION
  Report Type: Report from Study
  Country: US (occurrence: US)
  Receive Date: 20220728
  Receipt Date: 20220728
  Transmission Date: 20221027
  Serious: Yes (Hospitalization)
  Sender: FDA-Public Use
  Company Number: US-NOVARTISPH-NVSC2022US167235

PATIENT
  Age: 4 Year
  Sex: Female
  Weight: 20.3 kg

DRUGS (9)
  1. ILARIS [Suspect]
     Active Substance: CANAKINUMAB
     Indication: Juvenile idiopathic arthritis
     Dosage: 67.5 MG, QMO
     Route: 058
  2. ILARIS [Suspect]
     Active Substance: CANAKINUMAB
     Indication: Still^s disease
     Dosage: 90 MG, QMO
     Route: 058
  3. ILARIS [Suspect]
     Active Substance: CANAKINUMAB
     Dosage: 67.5 MG, EVERY 4 WEEKS
     Route: 058
     Dates: start: 20200804
  4. ILARIS [Suspect]
     Active Substance: CANAKINUMAB
     Dosage: 90 MG, (0.6 ML, EVERY 28 DAYS)
     Route: 058
  5. ILARIS [Suspect]
     Active Substance: CANAKINUMAB
     Dosage: UNK
     Route: 058
     Dates: start: 20220629
  6. ORAPRED [Concomitant]
     Active Substance: PREDNISOLONE SODIUM PHOSPHATE
     Indication: Product used for unknown indication
     Dosage: 13.5 ML, QD, (SOLUTION, FOR 21 DAYS, 300 ML, 15/5 MG/ML)
     Route: 048
  7. ORAPRED [Concomitant]
     Active Substance: PREDNISOLONE SODIUM PHOSPHATE
     Dosage: 14 ML, (SOLUTION, 420 ML)
     Route: 048
  8. VIGAMOX [Concomitant]
     Active Substance: MOXIFLOXACIN HYDROCHLORIDE
     Indication: Product used for unknown indication
     Dosage: UNK
     Route: 047
  9. VIGAMOX [Concomitant]
     Active Substance: MOXIFLOXACIN HYDROCHLORIDE
     Dosage: 1 DOSAGE FORM, TID, (INSITILL 1 DROP INTO AFFECTED EYE)
     Route: 047

REACTIONS (21)
  - Haemophagocytic lymphohistiocytosis [Recovering/Resolving]
  - Hyperferritinaemia [Unknown]
  - Hypertransaminasaemia [Unknown]
  - Blood lactate dehydrogenase increased [Unknown]
  - Hypofibrinogenaemia [Unknown]
  - Coagulopathy [Unknown]
  - Thrombocytopenia [Unknown]
  - Upper respiratory tract infection [Recovering/Resolving]
  - Cough [Recovering/Resolving]
  - Rhinorrhoea [Recovering/Resolving]
  - Nasal congestion [Recovering/Resolving]
  - Oropharyngeal pain [Recovering/Resolving]
  - Juvenile idiopathic arthritis [Unknown]
  - Still^s disease [Recovering/Resolving]
  - Pyrexia [Unknown]
  - Fatigue [Unknown]
  - Rash [Unknown]
  - Pruritus [Unknown]
  - Gait disturbance [Unknown]
  - Decreased appetite [Unknown]
  - Skin exfoliation [Unknown]

NARRATIVE: CASE EVENT DATE: 20201101
